FAERS Safety Report 24121397 (Version 1)
Quarter: 2024Q3

REPORT INFORMATION
  Report Type: Spontaneous
  Country: CN (occurrence: CN)
  Receive Date: 20240722
  Receipt Date: 20240722
  Transmission Date: 20241017
  Serious: Yes (Other)
  Sender: PURDUE
  Company Number: CN-NAPPMUNDI-GBR-2024-0118222

PATIENT
  Age: 28 Year
  Sex: Female

DRUGS (4)
  1. BUPRENORPHINE [Suspect]
     Active Substance: BUPRENORPHINE
     Indication: Ligament sprain
     Dosage: 5 MILLIGRAM, DAILY
     Route: 062
     Dates: start: 20240628, end: 20240628
  2. CELEBREX [Suspect]
     Active Substance: CELECOXIB
     Indication: Ligament sprain
     Dosage: 0.2 GRAM, DAILY
     Route: 048
     Dates: start: 20240628, end: 20240704
  3. TETRANDRINE, (+)- [Suspect]
     Active Substance: TETRANDRINE, (+)-
     Indication: Ligament sprain
     Dosage: 20 MILLIGRAM, DAILY
     Route: 048
     Dates: start: 20240628, end: 20240704
  4. GLUCOSAMINE SULFATE [Suspect]
     Active Substance: GLUCOSAMINE SULFATE
     Indication: Ligament sprain
     Dosage: 4 GRAIN, TID
     Route: 048
     Dates: start: 20240628, end: 20240704

REACTIONS (2)
  - Drug eruption [Unknown]
  - Inappropriate schedule of product administration [Unknown]

NARRATIVE: CASE EVENT DATE: 20240628
